FAERS Safety Report 6293727-0 (Version None)
Quarter: 2009Q3

REPORT INFORMATION
  Report Type: 
  Country: None (occurrence: None)
  Receive Date: 20090729
  Receipt Date: 20090727
  Transmission Date: 20100115
  Serious: Yes (Other)
  Sender: FDA-Public Use
  Company Number: 2009SP016629

PATIENT
  Age: 20 Year
  Sex: Male

DRUGS (2)
  1. NOXAFIL [Suspect]
     Indication: ASPERGILLOSIS
  2. VINCRISTINE [Concomitant]

REACTIONS (4)
  - AREFLEXIA [None]
  - ATROPHY [None]
  - MUSCULAR WEAKNESS [None]
  - PERIPHERAL MOTOR NEUROPATHY [None]
